FAERS Safety Report 8065996-8 (Version None)
Quarter: 2012Q1

REPORT INFORMATION
  Report Type: 
  Country: None (occurrence: None)
  Receive Date: 20120124
  Receipt Date: 20120120
  Transmission Date: 20120608
  Serious: Yes (Hospitalization, Other)
  Sender: FDA-Public Use
  Company Number: DE-BAYER-2012-000121

PATIENT
  Age: 43 Year
  Sex: Female
  Weight: 65 kg

DRUGS (1)
  1. BETASERON [Suspect]
     Indication: RELAPSING-REMITTING MULTIPLE SCLEROSIS
     Route: 058

REACTIONS (6)
  - SYNCOPE [None]
  - RELAPSING-REMITTING MULTIPLE SCLEROSIS [None]
  - FATIGUE [None]
  - CRANIOCEREBRAL INJURY [None]
  - NAUSEA [None]
  - PAIN [None]
